FAERS Safety Report 7029606-0 (Version None)
Quarter: 2010Q4

REPORT INFORMATION
  Report Type: 
  Country: None (occurrence: None)
  Receive Date: 20101005
  Receipt Date: 20100930
  Transmission Date: 20110411
  Serious: Yes (Other)
  Sender: FDA-Public Use
  Company Number: US-MERCK-1010USA00121

PATIENT
  Sex: Female

DRUGS (3)
  1. FOSAMAX [Suspect]
     Route: 048
     Dates: start: 20020101, end: 20080101
  2. FOSAMAX PLUS D [Suspect]
     Route: 048
     Dates: start: 20020101, end: 20080101
  3. ALENDRONATE SODIUM [Suspect]
     Route: 065
     Dates: start: 20080101, end: 20100101

REACTIONS (2)
  - BONE DENSITY DECREASED [None]
  - FEMUR FRACTURE [None]
